FAERS Safety Report 9524877 (Version 1)
Quarter: 2013Q1

REPORT INFORMATION
  Report Type: Spontaneous
  Country: US (occurrence: None)
  Receive Date: 20130314
  Receipt Date: 20130314
  Transmission Date: 20140127
  Serious: No
  Sender: FDA-Public Use
  Company Number: 1301USA007558

PATIENT
  Sex: Female

DRUGS (1)
  1. VICTRELIS (BOCEPREVIR) CAPSULE [Suspect]
     Dosage: ORAL

REACTIONS (2)
  - Anxiety [None]
  - Retching [None]
